FAERS Safety Report 6801113-7 (Version None)
Quarter: 2010Q2

REPORT INFORMATION
  Report Type: 
  Country: None (occurrence: None)
  Receive Date: 20100624
  Receipt Date: 20100615
  Transmission Date: 20101027
  Serious: Yes (Hospitalization)
  Sender: FDA-Public Use
  Company Number: 011934

PATIENT
  Sex: Male
  Weight: 98 kg

DRUGS (3)
  1. CERTOLIZUMAB PEGOL (CERTOLIZUMAB PEGOL) [Suspect]
     Indication: CROHN'S DISEASE
     Dosage: SEE IMAGE
     Route: 058
     Dates: start: 20040923, end: 20050310
  2. CERTOLIZUMAB PEGOL (CERTOLIZUMAB PEGOL) [Suspect]
     Indication: CROHN'S DISEASE
     Dosage: SEE IMAGE
     Route: 058
     Dates: start: 20050407, end: 20100413
  3. CERTOLIZUMAB PEGOL (CERTOLIZUMAB PEGOL) [Suspect]
     Indication: CROHN'S DISEASE
     Dosage: SEE IMAGE
     Route: 058
     Dates: start: 20050322

REACTIONS (10)
  - CAUDA EQUINA SYNDROME [None]
  - CONDITION AGGRAVATED [None]
  - CROHN'S DISEASE [None]
  - FALL [None]
  - FEMUR FRACTURE [None]
  - INTERVERTEBRAL DISC PROTRUSION [None]
  - LOBAR PNEUMONIA [None]
  - LUMBAR SPINAL STENOSIS [None]
  - PNEUMONIA STREPTOCOCCAL [None]
  - SEPSIS [None]
